FAERS Safety Report 8342067-4 (Version None)
Quarter: 2012Q2

REPORT INFORMATION
  Report Type: 
  Country: None (occurrence: None)
  Receive Date: 20120507
  Receipt Date: 20120430
  Transmission Date: 20120825
  Serious: Yes (Death, Other)
  Sender: FDA-Public Use
  Company Number: PHHY2012DE038072

PATIENT

DRUGS (2)
  1. METHOTREXATE [Concomitant]
  2. CYCLOSPORINE [Suspect]
     Indication: PROPHYLAXIS AGAINST GRAFT VERSUS HOST DISEASE

REACTIONS (4)
  - POSTERIOR REVERSIBLE ENCEPHALOPATHY SYNDROME [None]
  - MULTI-ORGAN FAILURE [None]
  - SYSTEMIC INFLAMMATORY RESPONSE SYNDROME [None]
  - HYPERTENSION [None]
